FAERS Safety Report 25042250 (Version 1)
Quarter: 2025Q1

REPORT INFORMATION
  Report Type: Spontaneous
  Country: RO (occurrence: RO)
  Receive Date: 20250305
  Receipt Date: 20250305
  Transmission Date: 20250409
  Serious: Yes (Other)
  Sender: REGENERON
  Company Number: RO-REGENERON PHARMACEUTICALS, INC.-2025-041491

PATIENT
  Age: 20 Year
  Sex: Female

DRUGS (2)
  1. LIBTAYO [Suspect]
     Active Substance: CEMIPLIMAB-RWLC
     Indication: Squamous cell carcinoma of skin
     Dosage: 350 MG, Q3W
     Dates: start: 202203, end: 202411
  2. LIBTAYO [Suspect]
     Active Substance: CEMIPLIMAB-RWLC
     Dosage: 350 MG, Q3W

REACTIONS (2)
  - Neutropenia [Recovered/Resolved]
  - Multisystem inflammatory syndrome [Recovering/Resolving]
